FAERS Safety Report 5426259-X (Version None)
Quarter: 2007Q3

REPORT INFORMATION
  Report Type: 
  Country: None (occurrence: None)
  Receive Date: 20070827
  Receipt Date: 20050408
  Transmission Date: 20080115
  Serious: Yes (Other)
  Sender: FDA-Public Use
  Company Number: NL-MERCK-0409NLD00026

PATIENT
  Age: 35 Year
  Sex: Male

DRUGS (4)
  1. ZETIA [Suspect]
     Indication: HYPERCHOLESTEROLAEMIA
     Route: 048
     Dates: start: 20040428, end: 20040430
  2. ATORVASTATIN CALCIUM [Concomitant]
     Route: 048
     Dates: start: 20040203
  3. CARBAMAZEPINE [Concomitant]
     Indication: EPILEPSY
     Route: 048
     Dates: start: 20021219
  4. LANOLIN AND MINERAL OIL AND PETROLATUM, WHITE [Concomitant]
     Route: 001

REACTIONS (2)
  - DRUG INTERACTION [None]
  - EPILEPSY [None]
